FAERS Safety Report 12765935 (Version 1)
Quarter: 2016Q3

REPORT INFORMATION
  Report Type: Spontaneous
  Country: US (occurrence: US)
  Receive Date: 20160915
  Receipt Date: 20160915
  Transmission Date: 20161109
  Serious: No
  Sender: FDA-Public Use
  Company Number: None

PATIENT
  Age: 72 Year
  Sex: Male

DRUGS (1)
  1. IMATINIB 100MG SUN [Suspect]
     Active Substance: IMATINIB
     Indication: NEOPLASM MALIGNANT
     Route: 048
     Dates: start: 20150601

REACTIONS (1)
  - Lip dry [None]

NARRATIVE: CASE EVENT DATE: 20160601
